FAERS Safety Report 6422033-6 (Version None)
Quarter: 2009Q4

REPORT INFORMATION
  Report Type: 
  Country: None (occurrence: None)
  Receive Date: 20091030
  Receipt Date: 20091020
  Transmission Date: 20100525
  Serious: Yes (Hospitalization)
  Sender: FDA-Public Use
  Company Number: US-ELI_LILLY_AND_COMPANY-US200910005362

PATIENT
  Age: 17 Year
  Sex: Male
  Weight: 137.42 kg

DRUGS (4)
  1. STRATTERA [Suspect]
     Indication: ATTENTION DEFICIT/HYPERACTIVITY DISORDER
     Dosage: 60 MG, DAILY (1/D)
     Route: 065
     Dates: start: 20090401, end: 20090101
  2. STRATTERA [Suspect]
     Dosage: 40 MG, DAILY (1/D)
     Route: 065
     Dates: start: 20090101
  3. EFFEXOR [Concomitant]
     Dosage: 150 MG, DAILY (1/D)
     Route: 065
  4. RISPERDAL [Concomitant]
     Dosage: 1 MG, DAILY (1/D)
     Route: 065

REACTIONS (3)
  - ALANINE AMINOTRANSFERASE INCREASED [None]
  - ASPARTATE AMINOTRANSFERASE INCREASED [None]
  - HOSPITALISATION [None]
